FAERS Safety Report 5239061-9 (Version None)
Quarter: 2007Q1

REPORT INFORMATION
  Report Type: 
  Country: None (occurrence: None)
  Receive Date: 20061208
  Receipt Date: 20050727
  Transmission Date: 20070707
  Serious: Yes (Other)
  Sender: FDA-Public Use
  Company Number: 2005UW09714

PATIENT
  Age: 52 Year
  Sex: Female
  Weight: 77.11 kg

DRUGS (8)
  1. CRESTOR [Suspect]
     Indication: BLOOD CHOLESTEROL INCREASED
     Dosage: 20 MG QD PO
     Route: 048
     Dates: start: 20040630
  2. CRESTOR [Suspect]
     Indication: BLOOD CHOLESTEROL INCREASED
     Dosage: 10 MG QD PO
     Route: 048
     Dates: start: 20050607
  3. PREVACID [Concomitant]
  4. ATENOLOL [Concomitant]
  5. GLUCOSAMINE [Concomitant]
  6. CHONDROITIN [Concomitant]
  7. ELOCON [Concomitant]
  8. PREMARIN [Concomitant]

REACTIONS (2)
  - BLOOD CHOLESTEROL INCREASED [None]
  - DRUG INEFFECTIVE [None]
